FAERS Safety Report 8724078 (Version 4)
Quarter: 2019Q4

REPORT INFORMATION
  Report Type: Spontaneous
  Country: US (occurrence: US)
  Receive Date: 20120815
  Receipt Date: 20191219
  Transmission Date: 20200122
  Serious: Yes (Other)
  Sender: FDA-Public Use
  Company Number: US-UCBSA-063362

PATIENT
  Age: 67 Year
  Sex: Female
  Weight: 80.7 kg

DRUGS (10)
  1. LEVOTHYROXINE. [Concomitant]
     Active Substance: LEVOTHYROXINE
  2. TOPROL XL [Concomitant]
     Active Substance: METOPROLOL SUCCINATE
  3. LOTRONEX [Concomitant]
     Active Substance: ALOSETRON HYDROCHLORIDE
  4. ENTOCORT [Concomitant]
     Active Substance: BUDESONIDE
  5. PENTASA [Concomitant]
     Active Substance: MESALAMINE
  6. FOLIC ACID. [Concomitant]
     Active Substance: FOLIC ACID
  7. LOMOTIL [Concomitant]
     Active Substance: ATROPINE SULFATE\DIPHENOXYLATE HYDROCHLORIDE
  8. CIMZIA [Suspect]
     Active Substance: CERTOLIZUMAB PEGOL
     Indication: CROHN^S DISEASE
     Dosage: 400 MG, EV 4 WEEKS
     Route: 058
     Dates: start: 201203, end: 20120502
  9. DIOVAN [Concomitant]
     Active Substance: VALSARTAN
  10. 5-ASA [Concomitant]
     Active Substance: MESALAMINE

REACTIONS (1)
  - Tuberculosis [Recovered/Resolved]

NARRATIVE: CASE EVENT DATE: 20120502
